FAERS Safety Report 20280896 (Version 1)
Quarter: 2022Q1

REPORT INFORMATION
  Report Type: Spontaneous
  Country: US (occurrence: US)
  Receive Date: 20220103
  Receipt Date: 20220103
  Transmission Date: 20220423
  Serious: No
  Sender: FDA-Public Use
  Company Number: US-SIGMAPHARM LABORATORIES, LLC-2021SIG00051

PATIENT
  Age: 42 Year
  Sex: Female

DRUGS (3)
  1. ASENAPINE [Suspect]
     Active Substance: ASENAPINE
     Indication: Depression
     Dosage: 10 MG, 1X/DAY
     Route: 060
     Dates: start: 20210910, end: 20210911
  2. ASENAPINE [Suspect]
     Active Substance: ASENAPINE
     Indication: Depression
     Dosage: 10 MG, 1X/DAY
     Route: 060
     Dates: start: 20210912, end: 20210922
  3. UNSPECIFIED INGREDIENT [Concomitant]
     Active Substance: UNSPECIFIED INGREDIENT

REACTIONS (5)
  - Stomatitis [Recovering/Resolving]
  - Application site reaction [Recovering/Resolving]
  - Product solubility abnormal [Recovered/Resolved]
  - Off label use [Recovered/Resolved]
  - Product substitution issue [Recovered/Resolved]

NARRATIVE: CASE EVENT DATE: 20210910
